FAERS Safety Report 7227450-2 (Version None)
Quarter: 2011Q1

REPORT INFORMATION
  Report Type: 
  Country: None (occurrence: None)
  Receive Date: 20110105
  Receipt Date: 20101230
  Transmission Date: 20110831
  Serious: Yes (Hospitalization, Other)
  Sender: FDA-Public Use
  Company Number: GER/UKI/10/0017039

PATIENT
  Age: 70 Year
  Sex: Male

DRUGS (7)
  1. BISOPROLOL (BISOPROLOL) [Concomitant]
  2. IMDUR [Concomitant]
  3. CLOPIDOGREL [Suspect]
     Indication: ACUTE MYOCARDIAL INFARCTION
     Dosage: 75 MG, ORAL
     Route: 048
     Dates: end: 20101202
  4. ASPIRIN [Suspect]
     Indication: ACUTE MYOCARDIAL INFARCTION
     Dosage: 75 MG, ORAL
     Route: 048
     Dates: end: 20101202
  5. NICORANDIL (NICORANDIL) [Concomitant]
  6. PERINDOPRIL ERBUMINE [Concomitant]
  7. ATORVASTATIN (ATORVASTATIN) [Concomitant]

REACTIONS (3)
  - MELAENA [None]
  - DUODENAL ULCER [None]
  - HAEMOGLOBIN DECREASED [None]
